FAERS Safety Report 5656910-0 (Version None)
Quarter: 2008Q1

REPORT INFORMATION
  Report Type: 
  Country: None (occurrence: None)
  Receive Date: 20080310
  Receipt Date: 20080304
  Transmission Date: 20080703
  Serious: Yes (Hospitalization)
  Sender: FDA-Public Use
  Company Number: US-GENENTECH-257122

PATIENT
  Sex: Female
  Weight: 100.5 kg

DRUGS (9)
  1. BEVACIZUMAB [Suspect]
     Indication: OVARIAN CANCER
     Dosage: 210 MG, UNK
     Dates: start: 20071024
  2. ABRAXANE [Suspect]
     Indication: OVARIAN CANCER
     Dosage: 1035 MG, UNK
     Dates: start: 20071024
  3. ADVIL [Concomitant]
     Indication: DRUG USE FOR UNKNOWN INDICATION
  4. MILK OF MAGNESIA [Concomitant]
     Indication: DRUG USE FOR UNKNOWN INDICATION
  5. VITAMIN E [Concomitant]
     Indication: DRUG USE FOR UNKNOWN INDICATION
  6. ZOFRAN [Concomitant]
     Indication: DRUG USE FOR UNKNOWN INDICATION
  7. PHENERGAN HCL [Concomitant]
     Indication: DRUG USE FOR UNKNOWN INDICATION
  8. LORTAB [Concomitant]
     Indication: DRUG USE FOR UNKNOWN INDICATION
  9. COLACE [Concomitant]
     Indication: DRUG USE FOR UNKNOWN INDICATION

REACTIONS (2)
  - ABDOMINAL PAIN [None]
  - PYREXIA [None]
